FAERS Safety Report 7557911-8 (Version None)
Quarter: 2011Q2

REPORT INFORMATION
  Report Type: 
  Country: None (occurrence: None)
  Receive Date: 20110620
  Receipt Date: 20110602
  Transmission Date: 20111010
  Serious: Yes (Congenital Anomaly)
  Sender: FDA-Public Use
  Company Number: A0921498A

PATIENT
  Sex: Male
  Weight: 4 kg

DRUGS (1)
  1. PAXIL [Suspect]
     Route: 064

REACTIONS (5)
  - AORTIC VALVE DISEASE [None]
  - PATENT DUCTUS ARTERIOSUS [None]
  - DRUG EXPOSURE DURING PREGNANCY [None]
  - PULMONARY VALVE STENOSIS [None]
  - LARGE FOR DATES BABY [None]
